FAERS Safety Report 22366622 (Version 8)
Quarter: 2024Q1

REPORT INFORMATION
  Report Type: Spontaneous
  Country: PT (occurrence: PT)
  Receive Date: 20230525
  Receipt Date: 20240327
  Transmission Date: 20240410
  Serious: Yes (Death, Other)
  Sender: FDA-Public Use
  Company Number: PT-Atnahs Limited-ATNAHS20230501356

PATIENT

DRUGS (379)
  1. HUMAN IMMUNOGLOBULIN G [Suspect]
     Active Substance: HUMAN IMMUNOGLOBULIN G
     Dosage: 50 MILLIGRAM PER CUBIC METRE
     Route: 065
  2. ESCHERICHIA COLI [Suspect]
     Active Substance: ESCHERICHIA COLI
     Indication: Product used for unknown indication
     Dosage: UNK
     Route: 065
  3. ESCHERICHIA COLI [Suspect]
     Active Substance: ESCHERICHIA COLI
     Indication: Product used for unknown indication
     Dosage: UNK
     Route: 065
  4. ESCHERICHIA COLI [Suspect]
     Active Substance: ESCHERICHIA COLI
     Dosage: UNK
     Route: 065
  5. ESCHERICHIA COLI [Suspect]
     Active Substance: ESCHERICHIA COLI
     Dosage: UNK
     Route: 065
  6. ESCHERICHIA COLI [Suspect]
     Active Substance: ESCHERICHIA COLI
     Dosage: UNK
     Route: 065
  7. ESCITALOPRAM OXALATE [Suspect]
     Active Substance: ESCITALOPRAM OXALATE
     Indication: Product used for unknown indication
     Dosage: 5 MILLIGRAM
     Route: 065
  8. ESCITALOPRAM OXALATE [Suspect]
     Active Substance: ESCITALOPRAM OXALATE
     Indication: Product used for unknown indication
     Dosage: UNK
     Route: 065
  9. ESCITALOPRAM OXALATE [Suspect]
     Active Substance: ESCITALOPRAM OXALATE
     Dosage: UNK
     Route: 065
  10. BRINZOLAMIDE [Suspect]
     Active Substance: BRINZOLAMIDE
     Indication: Product used for unknown indication
     Dosage: 100 MILLIGRAM (100 MILLIGRAM)
     Route: 065
  11. BRINZOLAMIDE [Suspect]
     Active Substance: BRINZOLAMIDE
     Indication: Product used for unknown indication
     Dosage: 100 MILLIGRAM (100 MILLIGRAM)
     Route: 065
  12. BUPRENORPHINE [Suspect]
     Active Substance: BUPRENORPHINE
     Indication: Product used for unknown indication
     Dosage: UNK (PHARAMCEUT DOSE FORM TERMID: BDF-0096)
     Route: 065
  13. BUPRENORPHINE [Suspect]
     Active Substance: BUPRENORPHINE
     Indication: Product used for unknown indication
     Dosage: UNK
     Route: 065
  14. BUPRENORPHINE [Suspect]
     Active Substance: BUPRENORPHINE
     Dosage: UNK
     Route: 065
  15. BUPRENORPHINE [Suspect]
     Active Substance: BUPRENORPHINE
     Dosage: UNK
     Route: 065
  16. BUPRENORPHINE [Suspect]
     Active Substance: BUPRENORPHINE
     Dosage: UNK
     Route: 065
  17. BUPRENORPHINE [Suspect]
     Active Substance: BUPRENORPHINE
     Dosage: UNK
     Route: 065
  18. BUPRENORPHINE [Suspect]
     Active Substance: BUPRENORPHINE
     Dosage: UNK
     Route: 065
  19. BUPRENORPHINE [Suspect]
     Active Substance: BUPRENORPHINE
     Dosage: UNK
     Route: 065
  20. BUPRENORPHINE [Suspect]
     Active Substance: BUPRENORPHINE
     Dosage: 35 GRAM PER HOUR
     Route: 062
  21. RIBAVIRIN [Suspect]
     Active Substance: RIBAVIRIN
     Indication: Product used for unknown indication
     Dosage: PHARMACEUTICAL DOSE FORM TERMID: PFT-12100
     Route: 065
  22. RIBAVIRIN [Suspect]
     Active Substance: RIBAVIRIN
     Indication: Product used for unknown indication
     Dosage: UNK
     Route: 065
  23. RIBAVIRIN [Suspect]
     Active Substance: RIBAVIRIN
     Dosage: UNK
     Route: 065
  24. RIBAVIRIN [Suspect]
     Active Substance: RIBAVIRIN
     Dosage: UNK
     Route: 065
  25. RIBAVIRIN [Suspect]
     Active Substance: RIBAVIRIN
     Dosage: UNK
     Route: 065
  26. RIBAVIRIN [Suspect]
     Active Substance: RIBAVIRIN
     Dosage: UNK
     Route: 065
  27. BISOPROLOL [Suspect]
     Active Substance: BISOPROLOL\BISOPROLOL FUMARATE
     Indication: Product used for unknown indication
     Dosage: UNK
     Route: 065
  28. BISOPROLOL [Suspect]
     Active Substance: BISOPROLOL\BISOPROLOL FUMARATE
     Indication: Product used for unknown indication
     Dosage: UNK
     Route: 065
  29. BISOPROLOL [Suspect]
     Active Substance: BISOPROLOL\BISOPROLOL FUMARATE
     Dosage: UNK
     Route: 065
  30. BISOPROLOL [Suspect]
     Active Substance: BISOPROLOL\BISOPROLOL FUMARATE
     Dosage: UNK
     Route: 065
  31. BISOPROLOL [Suspect]
     Active Substance: BISOPROLOL\BISOPROLOL FUMARATE
     Dosage: UNK
     Route: 065
  32. INDOMETHACIN [Suspect]
     Active Substance: INDOMETHACIN
     Indication: Product used for unknown indication
     Dosage: UNK
     Route: 065
  33. INDOMETHACIN [Suspect]
     Active Substance: INDOMETHACIN
     Indication: Product used for unknown indication
     Dosage: UNK
     Route: 065
  34. INDOMETHACIN [Suspect]
     Active Substance: INDOMETHACIN
     Dosage: UNK
     Route: 065
  35. INDOMETHACIN [Suspect]
     Active Substance: INDOMETHACIN
     Dosage: UNK
     Route: 065
  36. INDOMETHACIN [Suspect]
     Active Substance: INDOMETHACIN
     Dosage: UNK
     Route: 065
  37. MYCOPHENOLATE MOFETIL [Suspect]
     Active Substance: MYCOPHENOLATE MOFETIL
     Indication: Product used for unknown indication
     Dosage: UNK
     Route: 065
  38. MYCOPHENOLATE MOFETIL [Suspect]
     Active Substance: MYCOPHENOLATE MOFETIL
     Indication: Product used for unknown indication
     Dosage: UNK
     Route: 065
  39. MYCOPHENOLATE MOFETIL [Suspect]
     Active Substance: MYCOPHENOLATE MOFETIL
     Dosage: UNK
     Route: 065
  40. MYCOPHENOLATE MOFETIL [Suspect]
     Active Substance: MYCOPHENOLATE MOFETIL
     Dosage: UNK
     Route: 065
  41. MYCOPHENOLATE MOFETIL [Suspect]
     Active Substance: MYCOPHENOLATE MOFETIL
     Dosage: UNK
     Route: 065
  42. MYCOPHENOLATE MOFETIL [Suspect]
     Active Substance: MYCOPHENOLATE MOFETIL
     Dosage: UNK
     Route: 065
  43. VORTIOXETINE [Suspect]
     Active Substance: VORTIOXETINE
     Indication: Product used for unknown indication
     Dosage: UNK
     Route: 065
  44. VORTIOXETINE [Suspect]
     Active Substance: VORTIOXETINE
     Indication: Product used for unknown indication
     Dosage: UNK
     Route: 065
  45. VORTIOXETINE [Suspect]
     Active Substance: VORTIOXETINE
     Dosage: UNK
     Route: 065
  46. VORTIOXETINE [Suspect]
     Active Substance: VORTIOXETINE
     Dosage: UNK
     Route: 065
  47. VORTIOXETINE [Suspect]
     Active Substance: VORTIOXETINE
     Dosage: UNK
     Route: 065
  48. VORTIOXETINE [Suspect]
     Active Substance: VORTIOXETINE
     Dosage: UNK
     Route: 065
  49. CODEINE SULFATE [Suspect]
     Active Substance: CODEINE SULFATE
     Indication: Product used for unknown indication
     Dosage: UNK
     Route: 065
  50. CODEINE SULFATE [Suspect]
     Active Substance: CODEINE SULFATE
     Indication: Product used for unknown indication
     Dosage: UNK
     Route: 065
  51. CODEINE SULFATE [Suspect]
     Active Substance: CODEINE SULFATE
     Dosage: UNK
     Route: 065
  52. CODEINE SULFATE [Suspect]
     Active Substance: CODEINE SULFATE
     Dosage: UNK
     Route: 065
  53. CODEINE SULFATE [Suspect]
     Active Substance: CODEINE SULFATE
     Dosage: UNK
     Route: 065
  54. CODEINE SULFATE [Suspect]
     Active Substance: CODEINE SULFATE
     Dosage: UNK
     Route: 065
  55. EXEMESTANE [Suspect]
     Active Substance: EXEMESTANE
     Indication: Product used for unknown indication
     Dosage: 35 GRAM (35 GRAM)
     Route: 065
  56. EXEMESTANE [Suspect]
     Active Substance: EXEMESTANE
     Indication: Product used for unknown indication
     Dosage: 35 GRAM (35 GRAM)
     Route: 065
  57. EXEMESTANE [Suspect]
     Active Substance: EXEMESTANE
     Dosage: 35 GRAM (35 GRAM)
     Route: 065
  58. ALENDRONIC ACID [Suspect]
     Active Substance: ALENDRONIC ACID
     Indication: Product used for unknown indication
     Dosage: UNK
     Route: 065
  59. ALENDRONIC ACID [Suspect]
     Active Substance: ALENDRONIC ACID
     Indication: Product used for unknown indication
     Dosage: UNK
     Route: 065
  60. ALENDRONIC ACID [Suspect]
     Active Substance: ALENDRONIC ACID
     Dosage: UNK
     Route: 065
  61. ALENDRONIC ACID [Suspect]
     Active Substance: ALENDRONIC ACID
     Dosage: UNK
     Route: 065
  62. ALENDRONIC ACID [Suspect]
     Active Substance: ALENDRONIC ACID
     Dosage: UNK
     Route: 065
  63. NILOTINIB [Suspect]
     Active Substance: NILOTINIB
     Indication: Product used for unknown indication
     Dosage: UNK
     Route: 065
  64. NILOTINIB [Suspect]
     Active Substance: NILOTINIB
     Indication: Product used for unknown indication
     Dosage: UNK
     Route: 065
  65. NILOTINIB [Suspect]
     Active Substance: NILOTINIB
     Dosage: UNK
     Route: 065
  66. NILOTINIB [Suspect]
     Active Substance: NILOTINIB
     Dosage: UNK
     Route: 065
  67. NILOTINIB [Suspect]
     Active Substance: NILOTINIB
     Dosage: UNK
     Route: 065
  68. NILOTINIB [Suspect]
     Active Substance: NILOTINIB
     Dosage: UNK
     Route: 065
  69. NIMESULIDE [Suspect]
     Active Substance: NIMESULIDE
     Indication: Product used for unknown indication
     Dosage: UNK
     Route: 065
  70. NIMESULIDE [Suspect]
     Active Substance: NIMESULIDE
     Indication: Product used for unknown indication
     Dosage: UNK
     Route: 065
  71. NIMESULIDE [Suspect]
     Active Substance: NIMESULIDE
     Dosage: UNK
     Route: 065
  72. NIMESULIDE [Suspect]
     Active Substance: NIMESULIDE
     Dosage: UNK
     Route: 065
  73. NIMESULIDE [Suspect]
     Active Substance: NIMESULIDE
     Dosage: UNK
     Route: 065
  74. ZOLEDRONIC ACID [Suspect]
     Active Substance: ZOLEDRONIC ACID
     Indication: Product used for unknown indication
     Dosage: UNK
     Route: 065
  75. ZOLEDRONIC ACID [Suspect]
     Active Substance: ZOLEDRONIC ACID
     Indication: Product used for unknown indication
     Dosage: UNK
     Route: 065
  76. ZOLEDRONIC ACID [Suspect]
     Active Substance: ZOLEDRONIC ACID
     Dosage: UNK
     Route: 065
  77. ZOLEDRONIC ACID [Suspect]
     Active Substance: ZOLEDRONIC ACID
     Dosage: UNK
     Route: 065
  78. ZOLEDRONIC ACID [Suspect]
     Active Substance: ZOLEDRONIC ACID
     Dosage: UNK
     Route: 065
  79. ZOLEDRONIC ACID [Suspect]
     Active Substance: ZOLEDRONIC ACID
     Dosage: UNK
     Route: 065
  80. ASPIRIN [Suspect]
     Active Substance: ASPIRIN
     Indication: Product used for unknown indication
     Dosage: 100 MILLIGRAM
     Route: 065
  81. ASPIRIN [Suspect]
     Active Substance: ASPIRIN
     Indication: Product used for unknown indication
     Dosage: 5 MILLIGRAM
     Route: 065
  82. ASPIRIN [Suspect]
     Active Substance: ASPIRIN
     Dosage: UNK
     Route: 065
  83. ASPIRIN [Suspect]
     Active Substance: ASPIRIN
     Dosage: UNK
     Route: 065
  84. ASPIRIN [Suspect]
     Active Substance: ASPIRIN
     Dosage: UNK
     Route: 065
  85. ASPIRIN [Suspect]
     Active Substance: ASPIRIN
     Dosage: UNK
     Route: 065
  86. PRAVASTATIN SODIUM [Suspect]
     Active Substance: PRAVASTATIN SODIUM
     Indication: Product used for unknown indication
     Dosage: PHARMACEUTICAL DOSE FORM TERMID: PDF-10219000
     Route: 065
  87. PRAVASTATIN SODIUM [Suspect]
     Active Substance: PRAVASTATIN SODIUM
     Indication: Product used for unknown indication
     Dosage: UNK (PHARMACEUT FORM: TABLET)
     Route: 065
  88. PRAVASTATIN SODIUM [Suspect]
     Active Substance: PRAVASTATIN SODIUM
     Dosage: UNK
     Route: 065
  89. PRAVASTATIN SODIUM [Suspect]
     Active Substance: PRAVASTATIN SODIUM
     Dosage: UNK
     Route: 065
  90. PRAVASTATIN SODIUM [Suspect]
     Active Substance: PRAVASTATIN SODIUM
     Dosage: UNK
     Route: 065
  91. PRAVASTATIN SODIUM [Suspect]
     Active Substance: PRAVASTATIN SODIUM
     Dosage: UNK
     Route: 065
  92. ACETAMINOPHEN [Suspect]
     Active Substance: ACETAMINOPHEN
     Indication: Product used for unknown indication
     Dosage: UNK
     Route: 065
  93. ACETAMINOPHEN [Suspect]
     Active Substance: ACETAMINOPHEN
     Indication: Product used for unknown indication
     Dosage: UNK
     Route: 065
  94. ACETAMINOPHEN [Suspect]
     Active Substance: ACETAMINOPHEN
     Dosage: UNK
     Route: 065
  95. ACETAMINOPHEN [Suspect]
     Active Substance: ACETAMINOPHEN
     Dosage: UNK
     Route: 065
  96. ACETAMINOPHEN [Suspect]
     Active Substance: ACETAMINOPHEN
     Dosage: UNK
     Route: 065
  97. ACETAMINOPHEN [Suspect]
     Active Substance: ACETAMINOPHEN
     Dosage: UNK
     Route: 065
  98. GLUCOSAMINE [Suspect]
     Active Substance: GLUCOSAMINE
     Indication: Product used for unknown indication
     Dosage: UNK
     Route: 065
  99. GLUCOSAMINE [Suspect]
     Active Substance: GLUCOSAMINE
     Indication: Product used for unknown indication
     Dosage: UNK
     Route: 065
  100. GLUCOSAMINE [Suspect]
     Active Substance: GLUCOSAMINE
     Dosage: UNK
     Route: 065
  101. GLUCOSAMINE [Suspect]
     Active Substance: GLUCOSAMINE
     Dosage: UNK
     Route: 065
  102. GLUCOSAMINE [Suspect]
     Active Substance: GLUCOSAMINE
     Dosage: UNK
     Route: 065
  103. TELMISARTAN [Suspect]
     Active Substance: TELMISARTAN
     Indication: Product used for unknown indication
     Dosage: UNK
     Route: 065
  104. TELMISARTAN [Suspect]
     Active Substance: TELMISARTAN
     Indication: Product used for unknown indication
     Dosage: UNK
     Route: 065
  105. TELMISARTAN [Suspect]
     Active Substance: TELMISARTAN
     Dosage: UNK
     Route: 065
  106. TELMISARTAN [Suspect]
     Active Substance: TELMISARTAN
     Dosage: UNK
     Route: 065
  107. TELMISARTAN [Suspect]
     Active Substance: TELMISARTAN
     Dosage: UNK
     Route: 065
  108. TELMISARTAN [Suspect]
     Active Substance: TELMISARTAN
     Dosage: UNK
     Route: 065
  109. POTASSIUM IODIDE [Suspect]
     Active Substance: POTASSIUM IODIDE
     Indication: Product used for unknown indication
     Dosage: UNK
     Route: 065
  110. POTASSIUM IODIDE [Suspect]
     Active Substance: POTASSIUM IODIDE
     Indication: Product used for unknown indication
     Dosage: UNK
     Route: 065
  111. POTASSIUM IODIDE [Suspect]
     Active Substance: POTASSIUM IODIDE
     Dosage: UNK
     Route: 065
  112. POTASSIUM IODIDE [Suspect]
     Active Substance: POTASSIUM IODIDE
     Dosage: UNK
     Route: 065
  113. POTASSIUM IODIDE [Suspect]
     Active Substance: POTASSIUM IODIDE
     Dosage: UNK
     Route: 065
  114. POTASSIUM IODIDE [Suspect]
     Active Substance: POTASSIUM IODIDE
     Dosage: UNK
     Route: 065
  115. IMATINIB [Suspect]
     Active Substance: IMATINIB
     Indication: Product used for unknown indication
     Dosage: UNK
     Route: 065
  116. IMATINIB [Suspect]
     Active Substance: IMATINIB
     Indication: Product used for unknown indication
     Dosage: UNK
     Route: 065
  117. IMATINIB [Suspect]
     Active Substance: IMATINIB
     Dosage: UNK
     Route: 065
  118. IMATINIB [Suspect]
     Active Substance: IMATINIB
     Dosage: UNK
     Route: 065
  119. IMATINIB [Suspect]
     Active Substance: IMATINIB
     Dosage: UNK
     Route: 065
  120. IMATINIB [Suspect]
     Active Substance: IMATINIB
     Dosage: UNK
     Route: 065
  121. VENLAFAXINE HYDROCHLORIDE [Suspect]
     Active Substance: VENLAFAXINE HYDROCHLORIDE
     Indication: Product used for unknown indication
     Dosage: 100 MILLIGRAM (100 MILLIGRAM)
     Route: 065
  122. VENLAFAXINE HYDROCHLORIDE [Suspect]
     Active Substance: VENLAFAXINE HYDROCHLORIDE
     Indication: Product used for unknown indication
     Dosage: 100 MILLIGRAM
     Route: 065
  123. XYZAL [Suspect]
     Active Substance: LEVOCETIRIZINE DIHYDROCHLORIDE
     Indication: Product used for unknown indication
     Dosage: 5 MILLIGRAM (5 MILLIGRAM)
     Route: 065
  124. XYZAL [Suspect]
     Active Substance: LEVOCETIRIZINE DIHYDROCHLORIDE
     Indication: Product used for unknown indication
     Dosage: 5 MILLIGRAM (5 MILLIGRAM)
     Route: 065
  125. XYZAL [Suspect]
     Active Substance: LEVOCETIRIZINE DIHYDROCHLORIDE
     Dosage: 5 MILLIGRAM (5 MILLIGRAM)
     Route: 065
  126. MIRTAZAPINE [Suspect]
     Active Substance: MIRTAZAPINE
     Indication: Product used for unknown indication
     Dosage: PHARMACEUTICAL DOSE FORM TERMID: PDF-10219000
     Route: 065
  127. MIRTAZAPINE [Suspect]
     Active Substance: MIRTAZAPINE
     Indication: Product used for unknown indication
     Dosage: UNK
     Route: 065
  128. MIRTAZAPINE [Suspect]
     Active Substance: MIRTAZAPINE
     Dosage: UNK
     Route: 065
  129. MIRTAZAPINE [Suspect]
     Active Substance: MIRTAZAPINE
     Dosage: UNK
     Route: 065
  130. MIRTAZAPINE [Suspect]
     Active Substance: MIRTAZAPINE
     Dosage: UNK
     Route: 065
  131. FENOFIBRATE [Suspect]
     Active Substance: FENOFIBRATE
     Indication: Product used for unknown indication
     Dosage: UNK
     Route: 065
  132. FENOFIBRATE [Suspect]
     Active Substance: FENOFIBRATE
     Indication: Product used for unknown indication
     Dosage: UNK
     Route: 065
  133. FENOFIBRATE [Suspect]
     Active Substance: FENOFIBRATE
     Dosage: UNK
     Route: 065
  134. FENOFIBRATE [Suspect]
     Active Substance: FENOFIBRATE
     Dosage: UNK
     Route: 065
  135. FENOFIBRATE [Suspect]
     Active Substance: FENOFIBRATE
     Dosage: UNK
     Route: 065
  136. FENOFIBRATE [Suspect]
     Active Substance: FENOFIBRATE
     Dosage: UNK
     Route: 065
  137. TRAMADOL HYDROCHLORIDE [Suspect]
     Active Substance: TRAMADOL HYDROCHLORIDE
     Indication: Product used for unknown indication
     Dosage: UNK (PHARMACEUT DOSE FORM TERMID: BDF-0096
     Route: 065
  138. TRAMADOL HYDROCHLORIDE [Suspect]
     Active Substance: TRAMADOL HYDROCHLORIDE
     Indication: Product used for unknown indication
     Dosage: UNK
     Route: 065
  139. TRAMADOL HYDROCHLORIDE [Suspect]
     Active Substance: TRAMADOL HYDROCHLORIDE
     Dosage: UNK
     Route: 065
  140. TRAMADOL HYDROCHLORIDE [Suspect]
     Active Substance: TRAMADOL HYDROCHLORIDE
     Dosage: UNK
     Route: 065
  141. TRAMADOL HYDROCHLORIDE [Suspect]
     Active Substance: TRAMADOL HYDROCHLORIDE
     Dosage: UNK
     Route: 065
  142. SODIUM PICOSULFATE [Suspect]
     Active Substance: SODIUM PICOSULFATE
     Indication: Product used for unknown indication
     Dosage: UNK
     Route: 065
  143. SODIUM PICOSULFATE [Suspect]
     Active Substance: SODIUM PICOSULFATE
     Indication: Product used for unknown indication
     Dosage: UNK
     Route: 065
  144. SODIUM PICOSULFATE [Suspect]
     Active Substance: SODIUM PICOSULFATE
     Dosage: UNK
     Route: 065
  145. SODIUM PICOSULFATE [Suspect]
     Active Substance: SODIUM PICOSULFATE
     Dosage: UNK
     Route: 065
  146. SODIUM PICOSULFATE [Suspect]
     Active Substance: SODIUM PICOSULFATE
     Dosage: 35 GRAM
     Route: 065
  147. ESCHERICHIA COLI [Suspect]
     Active Substance: ESCHERICHIA COLI
     Indication: Product used for unknown indication
     Dosage: UNK
     Route: 065
  148. ESCHERICHIA COLI [Suspect]
     Active Substance: ESCHERICHIA COLI
     Indication: Product used for unknown indication
     Dosage: UNK
     Route: 065
  149. ESCHERICHIA COLI [Suspect]
     Active Substance: ESCHERICHIA COLI
     Dosage: UNK
     Route: 065
  150. CELECOXIB [Suspect]
     Active Substance: CELECOXIB
     Indication: Product used for unknown indication
     Dosage: UNK
     Route: 065
  151. CELECOXIB [Suspect]
     Active Substance: CELECOXIB
     Indication: Product used for unknown indication
     Dosage: UNK
     Route: 065
  152. CELECOXIB [Suspect]
     Active Substance: CELECOXIB
     Dosage: UNK
     Route: 065
  153. CELECOXIB [Suspect]
     Active Substance: CELECOXIB
     Dosage: UNK
     Route: 065
  154. CELECOXIB [Suspect]
     Active Substance: CELECOXIB
     Dosage: 100 MILLIGRAM
     Route: 065
  155. LEDIPASVIR [Suspect]
     Active Substance: LEDIPASVIR
     Indication: Product used for unknown indication
     Dosage: UNK
     Route: 065
  156. LEDIPASVIR [Suspect]
     Active Substance: LEDIPASVIR
     Indication: Product used for unknown indication
     Dosage: UNK
     Route: 065
  157. LEDIPASVIR [Suspect]
     Active Substance: LEDIPASVIR
     Dosage: UNK
     Route: 065
  158. LEDIPASVIR [Suspect]
     Active Substance: LEDIPASVIR
     Dosage: UNK
     Route: 065
  159. LEDIPASVIR [Suspect]
     Active Substance: LEDIPASVIR
     Dosage: UNK
     Route: 065
  160. LEDIPASVIR [Suspect]
     Active Substance: LEDIPASVIR
     Dosage: UNK
     Route: 065
  161. IBANDRONATE SODIUM [Suspect]
     Active Substance: IBANDRONATE SODIUM
     Indication: Product used for unknown indication
     Dosage: UNK
     Route: 065
  162. IBANDRONATE SODIUM [Suspect]
     Active Substance: IBANDRONATE SODIUM
     Indication: Product used for unknown indication
     Dosage: UNK
     Route: 065
  163. IBANDRONATE SODIUM [Suspect]
     Active Substance: IBANDRONATE SODIUM
     Dosage: UNK
     Route: 065
  164. IBANDRONATE SODIUM [Suspect]
     Active Substance: IBANDRONATE SODIUM
     Dosage: UNK
     Route: 065
  165. IBANDRONATE SODIUM [Suspect]
     Active Substance: IBANDRONATE SODIUM
     Dosage: UNK
     Route: 065
  166. IBANDRONATE SODIUM [Suspect]
     Active Substance: IBANDRONATE SODIUM
     Dosage: UNK
     Route: 065
  167. PITAVASTATIN [Suspect]
     Active Substance: PITAVASTATIN
     Indication: Product used for unknown indication
     Dosage: UNK
     Route: 065
  168. PITAVASTATIN [Suspect]
     Active Substance: PITAVASTATIN
     Indication: Product used for unknown indication
     Dosage: UNK
     Route: 065
  169. PITAVASTATIN [Suspect]
     Active Substance: PITAVASTATIN
     Dosage: UNK
     Route: 065
  170. PITAVASTATIN [Suspect]
     Active Substance: PITAVASTATIN
     Dosage: UNK
     Route: 065
  171. PITAVASTATIN [Suspect]
     Active Substance: PITAVASTATIN
     Dosage: UNK
     Route: 065
  172. PITAVASTATIN [Suspect]
     Active Substance: PITAVASTATIN
     Dosage: UNK
     Route: 065
  173. HYDROMORPHONE HCL [Suspect]
     Active Substance: HYDROMORPHONE HYDROCHLORIDE
     Indication: Product used for unknown indication
     Dosage: UNK
     Route: 065
  174. HYDROMORPHONE HCL [Suspect]
     Active Substance: HYDROMORPHONE HYDROCHLORIDE
     Indication: Product used for unknown indication
     Dosage: UNK
     Route: 065
  175. HYDROMORPHONE HCL [Suspect]
     Active Substance: HYDROMORPHONE HYDROCHLORIDE
     Dosage: UNK
     Route: 065
  176. HYDROMORPHONE HCL [Suspect]
     Active Substance: HYDROMORPHONE HYDROCHLORIDE
     Dosage: UNK
     Route: 065
  177. HYDROMORPHONE HCL [Suspect]
     Active Substance: HYDROMORPHONE HYDROCHLORIDE
     Dosage: UNK
     Route: 065
  178. HYDROMORPHONE HCL [Suspect]
     Active Substance: HYDROMORPHONE HYDROCHLORIDE
     Dosage: UNK
     Route: 065
  179. DOCETAXEL [Suspect]
     Active Substance: DOCETAXEL\DOCETAXEL ANHYDROUS
     Indication: Product used for unknown indication
     Dosage: UNK
     Route: 065
  180. DOCETAXEL [Suspect]
     Active Substance: DOCETAXEL\DOCETAXEL ANHYDROUS
     Indication: Product used for unknown indication
     Dosage: UNK
     Route: 065
  181. DOCETAXEL [Suspect]
     Active Substance: DOCETAXEL\DOCETAXEL ANHYDROUS
     Dosage: UNK
     Route: 065
  182. DOCETAXEL [Suspect]
     Active Substance: DOCETAXEL\DOCETAXEL ANHYDROUS
     Dosage: UNK
     Route: 065
  183. DOCETAXEL [Suspect]
     Active Substance: DOCETAXEL\DOCETAXEL ANHYDROUS
     Dosage: UNK
     Route: 065
  184. DOCETAXEL [Suspect]
     Active Substance: DOCETAXEL\DOCETAXEL ANHYDROUS
     Dosage: 100 MILLIGRAM
     Route: 065
  185. ENOXAPARIN SODIUM [Suspect]
     Active Substance: ENOXAPARIN SODIUM
     Indication: Product used for unknown indication
     Dosage: UNK
     Route: 065
  186. ENOXAPARIN SODIUM [Suspect]
     Active Substance: ENOXAPARIN SODIUM
     Indication: Product used for unknown indication
     Dosage: UNK
     Route: 065
  187. ENOXAPARIN SODIUM [Suspect]
     Active Substance: ENOXAPARIN SODIUM
     Dosage: UNK
     Route: 065
  188. ENOXAPARIN SODIUM [Suspect]
     Active Substance: ENOXAPARIN SODIUM
     Dosage: UNK
     Route: 065
  189. ENOXAPARIN SODIUM [Suspect]
     Active Substance: ENOXAPARIN SODIUM
     Dosage: UNK
     Route: 065
  190. ENOXAPARIN SODIUM [Suspect]
     Active Substance: ENOXAPARIN SODIUM
     Dosage: UNK
     Route: 065
  191. SERTRALINE HYDROCHLORIDE [Suspect]
     Active Substance: SERTRALINE HYDROCHLORIDE
     Indication: Product used for unknown indication
     Dosage: UNK
     Route: 065
  192. SERTRALINE HYDROCHLORIDE [Suspect]
     Active Substance: SERTRALINE HYDROCHLORIDE
     Indication: Product used for unknown indication
     Dosage: UNK
     Route: 065
  193. SERTRALINE HYDROCHLORIDE [Suspect]
     Active Substance: SERTRALINE HYDROCHLORIDE
     Dosage: UNK
     Route: 065
  194. SERTRALINE HYDROCHLORIDE [Suspect]
     Active Substance: SERTRALINE HYDROCHLORIDE
     Dosage: UNK
     Route: 065
  195. SERTRALINE HYDROCHLORIDE [Suspect]
     Active Substance: SERTRALINE HYDROCHLORIDE
     Dosage: UNK
     Route: 065
  196. SERTRALINE HYDROCHLORIDE [Suspect]
     Active Substance: SERTRALINE HYDROCHLORIDE
     Dosage: UNK
     Route: 065
  197. SOFOSBUVIR [Suspect]
     Active Substance: SOFOSBUVIR
     Indication: Product used for unknown indication
     Dosage: UNK
     Route: 065
  198. SOFOSBUVIR [Suspect]
     Active Substance: SOFOSBUVIR
     Indication: Product used for unknown indication
     Dosage: UNK
     Route: 065
  199. SOFOSBUVIR [Suspect]
     Active Substance: SOFOSBUVIR
     Dosage: UNK
     Route: 065
  200. SOFOSBUVIR [Suspect]
     Active Substance: SOFOSBUVIR
     Dosage: UNK
     Route: 065
  201. SOFOSBUVIR [Suspect]
     Active Substance: SOFOSBUVIR
     Dosage: UNK
     Route: 065
  202. SOFOSBUVIR [Suspect]
     Active Substance: SOFOSBUVIR
     Dosage: UNK
     Route: 065
  203. CILAZAPRIL ANHYDROUS [Suspect]
     Active Substance: CILAZAPRIL ANHYDROUS
     Indication: Product used for unknown indication
     Dosage: UNK
     Route: 065
  204. CILAZAPRIL ANHYDROUS [Suspect]
     Active Substance: CILAZAPRIL ANHYDROUS
     Indication: Product used for unknown indication
     Dosage: UNK
     Route: 065
  205. CILAZAPRIL ANHYDROUS [Suspect]
     Active Substance: CILAZAPRIL ANHYDROUS
     Dosage: UNK
     Route: 065
  206. CILAZAPRIL ANHYDROUS [Suspect]
     Active Substance: CILAZAPRIL ANHYDROUS
     Dosage: UNK
     Route: 065
  207. CILAZAPRIL ANHYDROUS [Suspect]
     Active Substance: CILAZAPRIL ANHYDROUS
     Dosage: UNK
     Route: 065
  208. ALISKIREN [Suspect]
     Active Substance: ALISKIREN
     Indication: Product used for unknown indication
     Dosage: UNK
     Route: 065
  209. ALISKIREN [Suspect]
     Active Substance: ALISKIREN
     Indication: Product used for unknown indication
     Dosage: UNK
     Route: 065
  210. ALISKIREN [Suspect]
     Active Substance: ALISKIREN
     Dosage: UNK
     Route: 065
  211. ALISKIREN [Suspect]
     Active Substance: ALISKIREN
     Dosage: UNK
     Route: 065
  212. ALISKIREN [Suspect]
     Active Substance: ALISKIREN
     Dosage: UNK
     Route: 065
  213. ADALIMUMAB [Suspect]
     Active Substance: ADALIMUMAB\ISOPROPYL ALCOHOL
     Indication: Product used for unknown indication
     Dosage: PHARMACEUTICAL DOSE FORM TERMID: PFT-22010
     Route: 065
  214. ADALIMUMAB [Suspect]
     Active Substance: ADALIMUMAB\ISOPROPYL ALCOHOL
     Indication: Product used for unknown indication
     Dosage: UNK
     Route: 065
  215. ADALIMUMAB [Suspect]
     Active Substance: ADALIMUMAB\ISOPROPYL ALCOHOL
     Dosage: UNK
     Route: 065
  216. ADALIMUMAB [Suspect]
     Active Substance: ADALIMUMAB\ISOPROPYL ALCOHOL
     Dosage: UNK
     Route: 065
  217. ADALIMUMAB [Suspect]
     Active Substance: ADALIMUMAB\ISOPROPYL ALCOHOL
     Dosage: 35 GRAM
     Route: 065
  218. DILTIAZEM HYDROCHLORIDE [Suspect]
     Active Substance: DILTIAZEM HYDROCHLORIDE
     Indication: Product used for unknown indication
     Dosage: UNK
     Route: 065
  219. DILTIAZEM HYDROCHLORIDE [Suspect]
     Active Substance: DILTIAZEM HYDROCHLORIDE
     Indication: Product used for unknown indication
     Dosage: UNK
     Route: 065
  220. DILTIAZEM HYDROCHLORIDE [Suspect]
     Active Substance: DILTIAZEM HYDROCHLORIDE
     Dosage: UNK
     Route: 065
  221. DILTIAZEM HYDROCHLORIDE [Suspect]
     Active Substance: DILTIAZEM HYDROCHLORIDE
     Dosage: UNK
     Route: 065
  222. DILTIAZEM HYDROCHLORIDE [Suspect]
     Active Substance: DILTIAZEM HYDROCHLORIDE
     Dosage: UNK
     Route: 065
  223. FLUOXETINE HYDROCHLORIDE [Suspect]
     Active Substance: FLUOXETINE HYDROCHLORIDE
     Indication: Product used for unknown indication
     Dosage: UNK
     Route: 065
  224. FLUOXETINE HYDROCHLORIDE [Suspect]
     Active Substance: FLUOXETINE HYDROCHLORIDE
     Indication: Product used for unknown indication
     Dosage: UNK
     Route: 065
  225. FLUOXETINE HYDROCHLORIDE [Suspect]
     Active Substance: FLUOXETINE HYDROCHLORIDE
     Dosage: UNK
     Route: 065
  226. FLUOXETINE HYDROCHLORIDE [Suspect]
     Active Substance: FLUOXETINE HYDROCHLORIDE
     Dosage: UNK
     Route: 065
  227. FLUOXETINE HYDROCHLORIDE [Suspect]
     Active Substance: FLUOXETINE HYDROCHLORIDE
     Dosage: UNK
     Route: 065
  228. FLUOXETINE HYDROCHLORIDE [Suspect]
     Active Substance: FLUOXETINE HYDROCHLORIDE
     Dosage: UNK
     Route: 065
  229. EZETIMIBE [Suspect]
     Active Substance: EZETIMIBE
     Indication: Product used for unknown indication
     Dosage: PHARMACEUTICAL DOSE FORM TERMID: PDF-10219000
     Route: 065
  230. EZETIMIBE [Suspect]
     Active Substance: EZETIMIBE
     Indication: Product used for unknown indication
     Dosage: UNK
     Route: 065
  231. EZETIMIBE [Suspect]
     Active Substance: EZETIMIBE
     Dosage: UNK
     Route: 065
  232. EZETIMIBE [Suspect]
     Active Substance: EZETIMIBE
     Dosage: UNK
     Route: 065
  233. EZETIMIBE [Suspect]
     Active Substance: EZETIMIBE
     Dosage: UNK
     Route: 048
  234. NITROGLYCERIN [Suspect]
     Active Substance: NITROGLYCERIN
     Indication: Product used for unknown indication
     Dosage: UNK
     Route: 065
  235. NITROGLYCERIN [Suspect]
     Active Substance: NITROGLYCERIN
     Dosage: UNK
     Route: 065
  236. DUTASTERIDE [Suspect]
     Active Substance: DUTASTERIDE
     Indication: Product used for unknown indication
     Dosage: UNK
     Route: 065
  237. DUTASTERIDE [Suspect]
     Active Substance: DUTASTERIDE
     Indication: Product used for unknown indication
     Dosage: UNK
     Route: 065
  238. DUTASTERIDE [Suspect]
     Active Substance: DUTASTERIDE
     Dosage: UNK
     Route: 065
  239. DUTASTERIDE [Suspect]
     Active Substance: DUTASTERIDE
     Dosage: UNK
     Route: 065
  240. DUTASTERIDE [Suspect]
     Active Substance: DUTASTERIDE
     Dosage: UNK
     Route: 065
  241. ETANERCEPT [Suspect]
     Active Substance: ETANERCEPT
     Indication: Product used for unknown indication
     Dosage: UNK
     Route: 065
  242. ETANERCEPT [Suspect]
     Active Substance: ETANERCEPT
     Indication: Blood pressure abnormal
     Dosage: UNK
     Route: 065
  243. ETANERCEPT [Suspect]
     Active Substance: ETANERCEPT
     Dosage: UNK
     Route: 065
  244. ETANERCEPT [Suspect]
     Active Substance: ETANERCEPT
     Dosage: UNK
     Route: 065
  245. ETANERCEPT [Suspect]
     Active Substance: ETANERCEPT
     Dosage: UNK
     Route: 065
  246. VERAPAMIL [Suspect]
     Active Substance: VERAPAMIL HYDROCHLORIDE
     Indication: Product used for unknown indication
     Dosage: UNK
     Route: 065
  247. VERAPAMIL [Suspect]
     Active Substance: VERAPAMIL HYDROCHLORIDE
     Indication: Product used for unknown indication
     Dosage: UNK
     Route: 065
  248. VERAPAMIL [Suspect]
     Active Substance: VERAPAMIL HYDROCHLORIDE
     Dosage: UNK
     Route: 065
  249. VERAPAMIL [Suspect]
     Active Substance: VERAPAMIL HYDROCHLORIDE
     Dosage: UNK
     Route: 065
  250. VERAPAMIL [Suspect]
     Active Substance: VERAPAMIL HYDROCHLORIDE
     Dosage: UNK
     Route: 065
  251. VERAPAMIL [Suspect]
     Active Substance: VERAPAMIL HYDROCHLORIDE
     Dosage: UNK
     Route: 065
  252. ANASTROZOLE [Suspect]
     Active Substance: ANASTROZOLE
     Indication: Product used for unknown indication
     Dosage: UNK
     Route: 065
  253. ANASTROZOLE [Suspect]
     Active Substance: ANASTROZOLE
     Indication: Product used for unknown indication
     Dosage: UNK
     Route: 065
  254. ANASTROZOLE [Suspect]
     Active Substance: ANASTROZOLE
     Dosage: UNK
     Route: 065
  255. ANASTROZOLE [Suspect]
     Active Substance: ANASTROZOLE
     Dosage: UNK
     Route: 065
  256. ANASTROZOLE [Suspect]
     Active Substance: ANASTROZOLE
     Dosage: UNK
     Route: 065
  257. PROPRANOLOL [Suspect]
     Active Substance: PROPRANOLOL HYDROCHLORIDE
     Indication: Product used for unknown indication
     Dosage: UNK
     Route: 065
  258. PROPRANOLOL [Suspect]
     Active Substance: PROPRANOLOL HYDROCHLORIDE
     Indication: Product used for unknown indication
     Dosage: UNK
     Route: 065
  259. PROPRANOLOL [Suspect]
     Active Substance: PROPRANOLOL HYDROCHLORIDE
     Dosage: UNK
     Route: 065
  260. PROPRANOLOL [Suspect]
     Active Substance: PROPRANOLOL HYDROCHLORIDE
     Dosage: UNK
     Route: 065
  261. PROPRANOLOL [Suspect]
     Active Substance: PROPRANOLOL HYDROCHLORIDE
     Dosage: UNK
     Route: 065
  262. CHOLECALCIFEROL [Suspect]
     Active Substance: CHOLECALCIFEROL
     Indication: Product used for unknown indication
     Dosage: UNK
     Route: 065
  263. CHOLECALCIFEROL [Suspect]
     Active Substance: CHOLECALCIFEROL
     Indication: Product used for unknown indication
     Dosage: UNK
     Route: 065
  264. CHOLECALCIFEROL [Suspect]
     Active Substance: CHOLECALCIFEROL
     Dosage: UNK
     Route: 065
  265. CHOLECALCIFEROL [Suspect]
     Active Substance: CHOLECALCIFEROL
     Dosage: UNK
     Route: 065
  266. CHOLECALCIFEROL [Suspect]
     Active Substance: CHOLECALCIFEROL
     Dosage: UNK
     Route: 065
  267. CHOLECALCIFEROL [Suspect]
     Active Substance: CHOLECALCIFEROL
     Dosage: UNK
     Route: 065
  268. SIMVASTATIN [Suspect]
     Active Substance: SIMVASTATIN
     Indication: Product used for unknown indication
     Dosage: PHARMACEUTICAL DOSE FORM TERMID: PDF-10219000
     Route: 065
  269. SIMVASTATIN [Suspect]
     Active Substance: SIMVASTATIN
     Indication: Product used for unknown indication
     Dosage: UNK
     Route: 065
  270. SIMVASTATIN [Suspect]
     Active Substance: SIMVASTATIN
     Dosage: UNK
     Route: 065
  271. SIMVASTATIN [Suspect]
     Active Substance: SIMVASTATIN
     Dosage: UNK
     Route: 065
  272. SIMVASTATIN [Suspect]
     Active Substance: SIMVASTATIN
     Dosage: UNK
     Route: 065
  273. SIMVASTATIN [Suspect]
     Active Substance: SIMVASTATIN
     Dosage: UNK
     Route: 048
  274. PENTAZOCINE [Suspect]
     Active Substance: PENTAZOCINE
     Indication: Product used for unknown indication
     Dosage: UNK
     Route: 065
  275. PENTAZOCINE [Suspect]
     Active Substance: PENTAZOCINE
     Indication: Product used for unknown indication
     Dosage: UNK
     Route: 065
  276. PENTAZOCINE [Suspect]
     Active Substance: PENTAZOCINE
     Dosage: UNK
     Route: 065
  277. PENTAZOCINE [Suspect]
     Active Substance: PENTAZOCINE
     Dosage: UNK
     Route: 065
  278. PENTAZOCINE [Suspect]
     Active Substance: PENTAZOCINE
     Dosage: UNK
     Route: 065
  279. PENTAZOCINE [Suspect]
     Active Substance: PENTAZOCINE
     Dosage: UNK
     Route: 065
  280. PENTOXIFYLLINE [Suspect]
     Active Substance: PENTOXIFYLLINE
     Indication: Product used for unknown indication
     Dosage: UNK
     Route: 065
  281. PENTOXIFYLLINE [Suspect]
     Active Substance: PENTOXIFYLLINE
     Indication: Product used for unknown indication
     Dosage: UNK
     Route: 065
  282. PENTOXIFYLLINE [Suspect]
     Active Substance: PENTOXIFYLLINE
     Dosage: UNK
     Route: 065
  283. PENTOXIFYLLINE [Suspect]
     Active Substance: PENTOXIFYLLINE
     Dosage: UNK
     Route: 065
  284. PENTOXIFYLLINE [Suspect]
     Active Substance: PENTOXIFYLLINE
     Dosage: UNK
     Route: 065
  285. PENTOXIFYLLINE [Suspect]
     Active Substance: PENTOXIFYLLINE
     Dosage: UNK
     Route: 065
  286. NORFLOXACIN [Suspect]
     Active Substance: NORFLOXACIN
     Indication: Product used for unknown indication
     Dosage: UNK
     Route: 065
  287. NORFLOXACIN [Suspect]
     Active Substance: NORFLOXACIN
     Indication: Product used for unknown indication
     Dosage: UNK
     Route: 065
  288. NORFLOXACIN [Suspect]
     Active Substance: NORFLOXACIN
     Dosage: UNK
     Route: 065
  289. NORFLOXACIN [Suspect]
     Active Substance: NORFLOXACIN
     Dosage: UNK
     Route: 065
  290. NORFLOXACIN [Suspect]
     Active Substance: NORFLOXACIN
     Dosage: UNK
     Route: 065
  291. PREGABALIN [Suspect]
     Active Substance: PREGABALIN
     Indication: Product used for unknown indication
     Dosage: 120 MILLIGRAM (120 MILLIGRAM)
     Route: 065
  292. PREGABALIN [Suspect]
     Active Substance: PREGABALIN
     Indication: Product used for unknown indication
     Dosage: 120 MILLIGRAM
     Route: 065
  293. PREGABALIN [Suspect]
     Active Substance: PREGABALIN
     Dosage: 50 MILLIGRAM
     Route: 065
  294. FLUVASTATIN [Suspect]
     Active Substance: FLUVASTATIN SODIUM
     Indication: Product used for unknown indication
     Dosage: UNK
     Route: 065
  295. FLUVASTATIN [Suspect]
     Active Substance: FLUVASTATIN SODIUM
     Indication: Product used for unknown indication
     Dosage: UNK
     Route: 065
  296. FLUVASTATIN [Suspect]
     Active Substance: FLUVASTATIN SODIUM
     Dosage: UNK
     Route: 065
  297. FLUVASTATIN [Suspect]
     Active Substance: FLUVASTATIN SODIUM
     Dosage: UNK
     Route: 065
  298. FLUVASTATIN [Suspect]
     Active Substance: FLUVASTATIN SODIUM
     Dosage: UNK
     Route: 065
  299. FLUVASTATIN [Suspect]
     Active Substance: FLUVASTATIN SODIUM
     Dosage: UNK
     Route: 065
  300. INDOMETHACIN SODIUM [Suspect]
     Active Substance: INDOMETHACIN SODIUM
     Indication: Product used for unknown indication
     Dosage: UNK
     Route: 065
  301. INDOMETHACIN SODIUM [Suspect]
     Active Substance: INDOMETHACIN SODIUM
     Indication: Product used for unknown indication
     Dosage: UNK
     Route: 065
  302. INDOMETHACIN SODIUM [Suspect]
     Active Substance: INDOMETHACIN SODIUM
     Dosage: UNK
     Route: 065
  303. HYDROCHLOROTHIAZIDE [Suspect]
     Active Substance: HYDROCHLOROTHIAZIDE
     Indication: Product used for unknown indication
     Dosage: UNK
     Route: 065
  304. HYDROCHLOROTHIAZIDE [Suspect]
     Active Substance: HYDROCHLOROTHIAZIDE
     Indication: Product used for unknown indication
     Dosage: UNK
     Route: 065
  305. HYDROCHLOROTHIAZIDE [Suspect]
     Active Substance: HYDROCHLOROTHIAZIDE
     Dosage: UNK
     Route: 065
  306. HYDROCHLOROTHIAZIDE [Suspect]
     Active Substance: HYDROCHLOROTHIAZIDE
     Dosage: UNK
     Route: 065
  307. HYDROCHLOROTHIAZIDE [Suspect]
     Active Substance: HYDROCHLOROTHIAZIDE
     Dosage: UNK
     Route: 065
  308. HYDROCHLOROTHIAZIDE [Suspect]
     Active Substance: HYDROCHLOROTHIAZIDE
     Dosage: UNK
     Route: 065
  309. BISOPROLOL FUMARATE [Suspect]
     Active Substance: BISOPROLOL FUMARATE
     Indication: Product used for unknown indication
     Dosage: UNK
     Route: 065
  310. BISOPROLOL FUMARATE [Suspect]
     Active Substance: BISOPROLOL FUMARATE
     Indication: Product used for unknown indication
     Dosage: UNK
     Route: 065
  311. BISOPROLOL FUMARATE [Suspect]
     Active Substance: BISOPROLOL FUMARATE
     Dosage: UNK
     Route: 065
  312. GINKGO [Suspect]
     Active Substance: GINKGO
     Indication: Product used for unknown indication
     Dosage: 120 MILLIGRAM (120 MILLIGRAM)
     Route: 065
  313. GINKGO [Suspect]
     Active Substance: GINKGO
     Indication: Product used for unknown indication
     Dosage: 120 MILLIGRAM
     Route: 065
  314. VENLAFAXINE HYDROCHLORIDE [Suspect]
     Active Substance: VENLAFAXINE HYDROCHLORIDE
     Indication: Product used for unknown indication
     Dosage: UNK
     Route: 065
  315. VENLAFAXINE HYDROCHLORIDE [Suspect]
     Active Substance: VENLAFAXINE HYDROCHLORIDE
     Indication: Product used for unknown indication
     Dosage: UNK
     Route: 065
  316. VENLAFAXINE HYDROCHLORIDE [Suspect]
     Active Substance: VENLAFAXINE HYDROCHLORIDE
     Dosage: UNK
     Route: 065
  317. ESOMEPRAZOLE [Suspect]
     Active Substance: ESOMEPRAZOLE
     Indication: Product used for unknown indication
     Dosage: UNK
     Route: 065
  318. ESOMEPRAZOLE [Suspect]
     Active Substance: ESOMEPRAZOLE
     Indication: Product used for unknown indication
     Dosage: UNK
     Route: 065
  319. ESOMEPRAZOLE [Suspect]
     Active Substance: ESOMEPRAZOLE
     Dosage: UNK
     Route: 065
  320. ESOMEPRAZOLE [Suspect]
     Active Substance: ESOMEPRAZOLE
     Dosage: UNK
     Route: 065
  321. ESOMEPRAZOLE [Suspect]
     Active Substance: ESOMEPRAZOLE
     Dosage: UNK
     Route: 065
  322. LETROZOLE [Suspect]
     Active Substance: LETROZOLE
     Indication: Product used for unknown indication
     Dosage: UNK
     Route: 065
  323. LETROZOLE [Suspect]
     Active Substance: LETROZOLE
     Indication: Product used for unknown indication
     Dosage: UNK
     Route: 065
  324. LETROZOLE [Suspect]
     Active Substance: LETROZOLE
     Dosage: UNK
     Route: 065
  325. LETROZOLE [Suspect]
     Active Substance: LETROZOLE
     Dosage: UNK
     Route: 065
  326. LETROZOLE [Suspect]
     Active Substance: LETROZOLE
     Dosage: UNK
     Route: 065
  327. LETROZOLE [Suspect]
     Active Substance: LETROZOLE
     Dosage: UNK
     Route: 065
  328. DONEPEZIL [Suspect]
     Active Substance: DONEPEZIL
     Indication: Product used for unknown indication
     Dosage: UNK
     Route: 065
  329. DONEPEZIL [Suspect]
     Active Substance: DONEPEZIL
     Dosage: UNK
     Route: 065
  330. DONEPEZIL [Suspect]
     Active Substance: DONEPEZIL
     Dosage: 5 MILLIGRAM
     Route: 048
  331. TOCILIZUMAB [Suspect]
     Active Substance: TOCILIZUMAB
     Indication: Product used for unknown indication
     Dosage: UNK
     Route: 065
  332. TOCILIZUMAB [Suspect]
     Active Substance: TOCILIZUMAB
     Indication: Product used for unknown indication
     Dosage: UNK
     Route: 065
  333. TOCILIZUMAB [Suspect]
     Active Substance: TOCILIZUMAB
     Dosage: UNK
     Route: 065
  334. TOCILIZUMAB [Suspect]
     Active Substance: TOCILIZUMAB
     Dosage: UNK
     Route: 065
  335. TOCILIZUMAB [Suspect]
     Active Substance: TOCILIZUMAB
     Dosage: UNK
     Route: 065
  336. TOCILIZUMAB [Suspect]
     Active Substance: TOCILIZUMAB
     Dosage: UNK
     Route: 065
  337. TAMSULOSIN HYDROCHLORIDE [Suspect]
     Active Substance: TAMSULOSIN HYDROCHLORIDE
     Indication: Product used for unknown indication
     Dosage: UNK
     Route: 065
  338. TAMSULOSIN HYDROCHLORIDE [Suspect]
     Active Substance: TAMSULOSIN HYDROCHLORIDE
     Indication: Product used for unknown indication
     Dosage: UNK
     Route: 065
  339. TAMSULOSIN HYDROCHLORIDE [Suspect]
     Active Substance: TAMSULOSIN HYDROCHLORIDE
     Dosage: UNK
     Route: 065
  340. TAMSULOSIN HYDROCHLORIDE [Suspect]
     Active Substance: TAMSULOSIN HYDROCHLORIDE
     Dosage: UNK
     Route: 065
  341. TAMSULOSIN HYDROCHLORIDE [Suspect]
     Active Substance: TAMSULOSIN HYDROCHLORIDE
     Dosage: UNK
     Route: 065
  342. TAMSULOSIN HYDROCHLORIDE [Suspect]
     Active Substance: TAMSULOSIN HYDROCHLORIDE
     Dosage: UNK
     Route: 065
  343. ACECLOFENAC [Suspect]
     Active Substance: ACECLOFENAC
     Indication: Product used for unknown indication
     Dosage: UNK
     Route: 065
  344. ACECLOFENAC [Suspect]
     Active Substance: ACECLOFENAC
     Indication: Product used for unknown indication
     Dosage: UNK
     Route: 065
  345. ACECLOFENAC [Suspect]
     Active Substance: ACECLOFENAC
     Dosage: UNK
     Route: 065
  346. ACECLOFENAC [Suspect]
     Active Substance: ACECLOFENAC
     Dosage: UNK
     Route: 065
  347. ACECLOFENAC [Suspect]
     Active Substance: ACECLOFENAC
     Dosage: UNK
     Route: 065
  348. ACECLOFENAC [Suspect]
     Active Substance: ACECLOFENAC
     Dosage: UNK
     Route: 065
  349. ATORVASTATIN CALCIUM [Suspect]
     Active Substance: ATORVASTATIN CALCIUM
     Indication: Product used for unknown indication
     Dosage: UNK
     Route: 065
  350. ATORVASTATIN CALCIUM [Suspect]
     Active Substance: ATORVASTATIN CALCIUM
     Indication: Product used for unknown indication
     Dosage: UNK
     Route: 065
  351. ATORVASTATIN CALCIUM [Suspect]
     Active Substance: ATORVASTATIN CALCIUM
     Dosage: UNK
     Route: 065
  352. ATORVASTATIN CALCIUM [Suspect]
     Active Substance: ATORVASTATIN CALCIUM
     Dosage: UNK
     Route: 065
  353. ATORVASTATIN CALCIUM [Suspect]
     Active Substance: ATORVASTATIN CALCIUM
     Dosage: UNK
     Route: 065
  354. ATORVASTATIN CALCIUM [Suspect]
     Active Substance: ATORVASTATIN CALCIUM
     Dosage: UNK
     Route: 065
  355. AGOMELATINE [Suspect]
     Active Substance: AGOMELATINE
     Indication: Product used for unknown indication
     Dosage: UNK
     Route: 065
  356. AGOMELATINE [Suspect]
     Active Substance: AGOMELATINE
     Indication: Product used for unknown indication
     Dosage: UNK
     Route: 065
  357. AGOMELATINE [Suspect]
     Active Substance: AGOMELATINE
     Dosage: UNK
     Route: 065
  358. AGOMELATINE [Suspect]
     Active Substance: AGOMELATINE
     Dosage: UNK
     Route: 065
  359. AGOMELATINE [Suspect]
     Active Substance: AGOMELATINE
     Dosage: UNK
     Route: 065
  360. DOMPERIDONE [Suspect]
     Active Substance: DOMPERIDONE
     Indication: Product used for unknown indication
     Dosage: UNK
     Route: 065
  361. DOMPERIDONE [Suspect]
     Active Substance: DOMPERIDONE
     Indication: Product used for unknown indication
     Dosage: UNK
     Route: 065
  362. DOMPERIDONE [Suspect]
     Active Substance: DOMPERIDONE
     Dosage: UNK
     Route: 065
  363. DOMPERIDONE [Suspect]
     Active Substance: DOMPERIDONE
     Dosage: UNK
     Route: 065
  364. DOMPERIDONE [Suspect]
     Active Substance: DOMPERIDONE
     Dosage: UNK
     Route: 065
  365. DOMPERIDONE [Suspect]
     Active Substance: DOMPERIDONE
     Dosage: UNK
     Route: 065
  366. NITROGLYCERIN [Suspect]
     Active Substance: NITROGLYCERIN
     Indication: Product used for unknown indication
     Dosage: UNK
     Route: 065
  367. NITROGLYCERIN [Suspect]
     Active Substance: NITROGLYCERIN
     Dosage: UNK
     Route: 065
  368. NITROGLYCERIN [Suspect]
     Active Substance: NITROGLYCERIN
     Dosage: UNK
     Route: 065
  369. ALENDRONATE SODIUM [Suspect]
     Active Substance: ALENDRONATE SODIUM
     Indication: Product used for unknown indication
     Dosage: PHARMACEUTICAL DOSE FORM TERMID: PDF-10219000
     Route: 065
  370. CHOLECALCIFEROL [Suspect]
     Active Substance: CHOLECALCIFEROL
     Indication: Product used for unknown indication
     Dosage: 50 GRAM
     Route: 065
  371. ESCITALOPRAM [Suspect]
     Active Substance: ESCITALOPRAM OXALATE
     Indication: Product used for unknown indication
     Dosage: 5 MILLIGRAM
     Route: 065
  372. IODINE [Suspect]
     Active Substance: IODINE
     Indication: Product used for unknown indication
     Route: 065
  373. CODEINE PHOSPHATE [Suspect]
     Active Substance: CODEINE PHOSPHATE
     Indication: Product used for unknown indication
     Route: 065
  374. MYCOPHENOLIC ACID [Suspect]
     Active Substance: MYCOPHENOLIC ACID
     Indication: Product used for unknown indication
     Route: 065
  375. VERAPAMIL HYDROCHLORIDE [Suspect]
     Active Substance: VERAPAMIL HYDROCHLORIDE
     Indication: Product used for unknown indication
     Route: 065
  376. NORFLOXACIN [Suspect]
     Active Substance: NORFLOXACIN
     Indication: Product used for unknown indication
     Route: 065
  377. NITROGLYCERIN [Suspect]
     Active Substance: NITROGLYCERIN
     Indication: Product used for unknown indication
     Route: 065
  378. PRAVASTATIN [Suspect]
     Active Substance: PRAVASTATIN
     Indication: Product used for unknown indication
     Route: 065
  379. LEVOCETIRIZINE [Suspect]
     Active Substance: LEVOCETIRIZINE
     Indication: Product used for unknown indication
     Dosage: 5 MILLIGRAM
     Route: 065

REACTIONS (44)
  - Malaise [Unknown]
  - Cough [Unknown]
  - Haematuria [Unknown]
  - Fall [Unknown]
  - Vision blurred [Unknown]
  - Urinary tract disorder [Unknown]
  - Tachycardia [Fatal]
  - Diarrhoea [Unknown]
  - Sepsis [Fatal]
  - Dizziness [Unknown]
  - Headache [Fatal]
  - Syncope [Unknown]
  - Cardio-respiratory arrest [Fatal]
  - Photophobia [Unknown]
  - Dyspnoea [Unknown]
  - Myalgia [Unknown]
  - Presyncope [Unknown]
  - Blindness [Unknown]
  - Chills [Unknown]
  - Fatigue [Unknown]
  - Abdominal pain [Unknown]
  - Vomiting [Unknown]
  - Haemorrhagic stroke [Fatal]
  - Decreased appetite [Unknown]
  - Ascites [Unknown]
  - Somnolence [Unknown]
  - Somnolence [Unknown]
  - Blood pressure increased [Unknown]
  - Pruritus [Unknown]
  - Diplopia [Unknown]
  - Haematemesis [Unknown]
  - Coma [Unknown]
  - Ocular discomfort [Fatal]
  - Arthralgia [Unknown]
  - Eye pain [Unknown]
  - Head discomfort [Unknown]
  - Insomnia [Unknown]
  - Tinnitus [Unknown]
  - Amaurosis fugax [Unknown]
  - Pyrexia [Unknown]
  - Abdominal pain upper [Unknown]
  - Altered state of consciousness [Fatal]
  - Generalised oedema [Unknown]
  - Asthenia [Unknown]
